FAERS Safety Report 20393921 (Version 1)
Quarter: 2022Q1

REPORT INFORMATION
  Report Type: Spontaneous
  Country: US (occurrence: US)
  Receive Date: 20220129
  Receipt Date: 20220129
  Transmission Date: 20220423
  Serious: Yes (Death, Other)
  Sender: FDA-Public Use
  Company Number: US-AMGEN-USASP2022013980

PATIENT

DRUGS (9)
  1. BLINATUMOMAB [Suspect]
     Active Substance: BLINATUMOMAB
     Indication: B precursor type acute leukaemia
     Dosage: UNK
     Route: 065
  2. PONATINIB [Concomitant]
     Active Substance: PONATINIB
     Indication: B precursor type acute leukaemia
     Dosage: UNK
  3. CYCLOPHOSPHAMIDE [Concomitant]
     Active Substance: CYCLOPHOSPHAMIDE
     Indication: Prophylaxis against graft versus host disease
  4. METHOTREXATE [Concomitant]
     Active Substance: METHOTREXATE
     Indication: Prophylaxis against graft versus host disease
  5. MYCOPHENOLATE MOFETIL [Concomitant]
     Active Substance: MYCOPHENOLATE MOFETIL
     Indication: Prophylaxis against graft versus host disease
  6. CLOFARABINE [Concomitant]
     Active Substance: CLOFARABINE
  7. BUSULFAN [Concomitant]
     Active Substance: BUSULFAN
     Dosage: 16 MG/KG
  8. THIOTEPA [Concomitant]
     Active Substance: THIOTEPA
  9. MELPHALAN [Concomitant]
     Active Substance: MELPHALAN

REACTIONS (14)
  - Death [Fatal]
  - Toxicity to various agents [Fatal]
  - Acute lymphocytic leukaemia recurrent [Fatal]
  - Venoocclusive liver disease [Fatal]
  - Transplantation complication [Fatal]
  - Acute graft versus host disease [Fatal]
  - Infection [Fatal]
  - Acute graft versus host disease in intestine [Unknown]
  - Acute graft versus host disease in liver [Unknown]
  - Immune effector cell-associated neurotoxicity syndrome [Unknown]
  - Hyperbilirubinaemia [Unknown]
  - Cytokine release syndrome [Unknown]
  - Therapy non-responder [Unknown]
  - Transaminases increased [Unknown]
